FAERS Safety Report 7559329-0 (Version None)
Quarter: 2011Q2

REPORT INFORMATION
  Report Type: 
  Country: None (occurrence: None)
  Receive Date: 20110617
  Receipt Date: 20110617
  Transmission Date: 20111010
  Serious: Yes (Death, Life-Threatening, Hospitalization)
  Sender: FDA-Public Use
  Company Number: None

PATIENT
  Age: 54 Year
  Sex: Male
  Weight: 97 kg

DRUGS (2)
  1. CETUXIMAB [Suspect]
  2. CETUXIMAB [Suspect]
     Indication: COLON CANCER
     Dosage: 500 MG ONCE IV
     Route: 042
     Dates: start: 20110613, end: 20110613

REACTIONS (4)
  - HYPOXIA [None]
  - RASH [None]
  - RESPIRATORY DISTRESS [None]
  - CONVULSION [None]
